FAERS Safety Report 7887835-8 (Version None)
Quarter: 2011Q4

REPORT INFORMATION
  Report Type: 
  Country: None (occurrence: None)
  Receive Date: 20111102
  Receipt Date: 20111102
  Transmission Date: 20120403
  Serious: No
  Sender: FDA-Public Use
  Company Number: None

PATIENT
  Age: 60 Year
  Sex: Female

DRUGS (10)
  1. SIMVASTATIN [Concomitant]
  2. REVLIMID [Suspect]
     Indication: LEUKAEMIA PLASMACYTIC
     Dosage: REVLIMID 10 MG DAILY X21D/28D ORALLY
     Route: 048
     Dates: start: 20110901
  3. ATENOLOL [Concomitant]
  4. HYDROCODONE BITARTRATE AND ACETAMINOPHEN [Concomitant]
  5. CYCLOBENZAPRINE [Concomitant]
  6. ALLOPURINOL [Concomitant]
  7. LISINOPRIL [Concomitant]
  8. FUROSEMIDE [Concomitant]
  9. LORAZEPAM [Concomitant]
  10. DEXAMETHASONE [Concomitant]

REACTIONS (1)
  - DYSGEUSIA [None]
